FAERS Safety Report 6973475-1 (Version None)
Quarter: 2010Q3

REPORT INFORMATION
  Report Type: 
  Country: None (occurrence: None)
  Receive Date: 20100909
  Receipt Date: 20100830
  Transmission Date: 20110219
  Serious: Yes (Other)
  Sender: FDA-Public Use
  Company Number: US-PFIZER INC-2010076384

PATIENT
  Sex: Female

DRUGS (16)
  1. CHANTIX [Suspect]
     Indication: SMOKING CESSATION THERAPY
     Dosage: 40 MG, 2X/DAY
     Dates: start: 20070701, end: 20080201
  2. ADDERALL 10 [Concomitant]
     Indication: AMNESIA
     Dosage: UNK
     Dates: start: 20050101, end: 20090801
  3. LISDEXAMFETAMINE DIMESYLATE [Concomitant]
     Indication: AMNESIA
     Dosage: UNK
     Dates: start: 20050101, end: 20090801
  4. PROZAC [Concomitant]
     Indication: DEPRESSION
     Dosage: UNK
     Dates: start: 20050101, end: 20090801
  5. XANAX [Concomitant]
     Indication: ANXIETY
     Dosage: UNK
     Dates: start: 20050101, end: 20090801
  6. ULTRAM [Concomitant]
     Indication: PAIN
     Dosage: UNK
     Dates: start: 20050101, end: 20090801
  7. DI-GESIC [Concomitant]
     Indication: PAIN
     Dosage: UNK
     Dates: start: 20050101, end: 20090801
  8. HYDROCHLOROTHIAZIDE [Concomitant]
     Indication: DIURETIC THERAPY
     Dosage: UNK
     Dates: start: 20050101, end: 20090801
  9. SYNTHROID [Concomitant]
     Indication: THYROID DISORDER
     Dosage: UNK
     Dates: start: 20050101, end: 20090801
  10. TRICOR [Concomitant]
     Indication: BLOOD CHOLESTEROL INCREASED
     Dosage: UNK
     Dates: start: 20050101, end: 20090801
  11. MOBIC [Concomitant]
     Indication: PAIN
     Dosage: UNK
     Dates: start: 20050101, end: 20090801
  12. MOBIC [Concomitant]
     Indication: FIBROMYALGIA
  13. ABILIFY [Concomitant]
     Dosage: UNK
     Dates: start: 20050101, end: 20090801
  14. MICARDIS [Concomitant]
     Indication: BLOOD CHOLESTEROL
     Dosage: UNK
     Dates: start: 20050101
  15. CYCLOBENZAPRINE [Concomitant]
     Indication: MYALGIA
     Dosage: UNK
     Dates: start: 20050101, end: 20090801
  16. CYCLOBENZAPRINE [Concomitant]
     Indication: SLEEP DISORDER

REACTIONS (4)
  - AGGRESSION [None]
  - ANGER [None]
  - DEPRESSION [None]
  - SUICIDAL IDEATION [None]
